FAERS Safety Report 10464411 (Version 1)
Quarter: 2014Q3

REPORT INFORMATION
  Report Type: Spontaneous
  Country: IN (occurrence: IN)
  Receive Date: 20140919
  Receipt Date: 20140919
  Transmission Date: 20150326
  Serious: Yes (Other)
  Sender: FDA-Public Use
  Company Number: PHHY2014IN119024

PATIENT
  Age: 42 Year
  Sex: Male

DRUGS (2)
  1. OFLOXACINE [Suspect]
     Active Substance: OFLOXACIN
     Indication: ABDOMINAL PAIN
     Route: 048
  2. OFLOXACINE [Suspect]
     Active Substance: OFLOXACIN
     Indication: DIARRHOEA

REACTIONS (13)
  - Pyrexia [Recovered/Resolved]
  - Post inflammatory pigmentation change [Recovered/Resolved]
  - Toxic epidermal necrolysis [Recovered/Resolved]
  - Skin exfoliation [Recovered/Resolved]
  - Rash erythematous [Recovered/Resolved]
  - Aspartate aminotransferase increased [Recovered/Resolved]
  - Oral mucosa erosion [Recovered/Resolved]
  - Hypotension [Recovered/Resolved]
  - Scab [Recovered/Resolved]
  - Oral disorder [Recovered/Resolved]
  - Conjunctival hyperaemia [Recovered/Resolved]
  - Lip erosion [Recovered/Resolved]
  - Alanine aminotransferase increased [Recovered/Resolved]
